FAERS Safety Report 13611705 (Version 2)
Quarter: 2017Q3

REPORT INFORMATION
  Report Type: Spontaneous
  Country: US (occurrence: US)
  Receive Date: 20170605
  Receipt Date: 20170823
  Transmission Date: 20171127
  Serious: Yes (Hospitalization)
  Sender: FDA-Public Use
  Company Number: US-PFIZER INC-2017244352

PATIENT
  Age: 51 Year
  Sex: Male
  Weight: 61.23 kg

DRUGS (1)
  1. FLUCONAZOLE. [Suspect]
     Active Substance: FLUCONAZOLE
     Indication: COCCIDIOIDOMYCOSIS
     Dosage: 400 MG, 1X/DAY
     Route: 048
     Dates: start: 2015, end: 201612

REACTIONS (2)
  - Lung disorder [Unknown]
  - Drug effect decreased [Unknown]
